FAERS Safety Report 15509069 (Version 10)
Quarter: 2019Q1

REPORT INFORMATION
  Report Type: Report from Study
  Country: US (occurrence: US)
  Receive Date: 20181016
  Receipt Date: 20190109
  Transmission Date: 20190417
  Serious: Yes (Hospitalization, Other)
  Sender: FDA-Public Use
  Company Number: US-GILEAD-2018-0368741

PATIENT
  Age: 9 Year
  Sex: Female
  Weight: 43.6 kg

DRUGS (7)
  1. AMBRISENTAN [Suspect]
     Active Substance: AMBRISENTAN
     Indication: PULMONARY ARTERIAL HYPERTENSION
     Dosage: 5 MG, QD
     Route: 048
     Dates: start: 20150312
  2. AMBRISENTAN [Suspect]
     Active Substance: AMBRISENTAN
     Dosage: 10 MG
     Route: 048
     Dates: start: 20181206
  3. ADCIRCA [Concomitant]
     Active Substance: TADALAFIL
  4. DIGOXIN. [Concomitant]
     Active Substance: DIGOXIN
  5. TADALAFIL. [Concomitant]
     Active Substance: TADALAFIL
  6. COUMADIN [Concomitant]
     Active Substance: WARFARIN SODIUM
  7. REMODULIN [Concomitant]
     Active Substance: TREPROSTINIL
     Dosage: 88 NG/KG Q1 MINUTE

REACTIONS (9)
  - Chest pain [Unknown]
  - Off label use [Not Recovered/Not Resolved]
  - Bacterial infection [Unknown]
  - Malaise [Unknown]
  - Sepsis [Unknown]
  - Headache [Unknown]
  - Pulmonary arterial hypertension [Not Recovered/Not Resolved]
  - Pyrexia [Recovered/Resolved]
  - Catheter site erythema [Unknown]

NARRATIVE: CASE EVENT DATE: 20150312
